FAERS Safety Report 25818471 (Version 1)
Quarter: 2025Q3

REPORT INFORMATION
  Report Type: Spontaneous
  Country: JP (occurrence: JP)
  Receive Date: 20250918
  Receipt Date: 20250918
  Transmission Date: 20251021
  Serious: Yes (Hospitalization)
  Sender: AMGEN
  Company Number: JP-AMGEN-JPNSP2025181718

PATIENT

DRUGS (2)
  1. EVENITY [Suspect]
     Active Substance: ROMOSOZUMAB-AQQG
     Indication: Product used for unknown indication
     Route: 058
     Dates: start: 202404, end: 202408
  2. EVENITY [Suspect]
     Active Substance: ROMOSOZUMAB-AQQG
     Route: 058
     Dates: start: 20250809

REACTIONS (2)
  - Femur fracture [Unknown]
  - Therapy interrupted [Unknown]

NARRATIVE: CASE EVENT DATE: 20240801
